FAERS Safety Report 4627277-1 (Version None)
Quarter: 2005Q2

REPORT INFORMATION
  Report Type: 
  Country: None (occurrence: None)
  Receive Date: 20050405
  Receipt Date: 20030822
  Transmission Date: 20051028
  Serious: Yes (Hospitalization)
  Sender: FDA-Public Use
  Company Number: DE-2003-BP-06186BP

PATIENT
  Sex: Male
  Weight: 125 kg

DRUGS (13)
  1. MICARDIS [Suspect]
     Indication: CARDIOVASCULAR DISORDER
     Route: 048
     Dates: start: 20030606, end: 20030815
  2. MICARDIS [Suspect]
     Indication: CEREBROVASCULAR ACCIDENT PROPHYLAXIS
  3. RAMIPRIL [Suspect]
     Indication: CARDIOVASCULAR DISORDER
     Route: 048
     Dates: start: 20030606, end: 20030815
  4. RAMIPRIL [Suspect]
     Indication: CEREBROVASCULAR ACCIDENT PROPHYLAXIS
  5. ALDACTONE [Suspect]
     Dates: end: 20030101
  6. THIAZID [Suspect]
     Dates: end: 20030101
  7. AMLODIPINE [Concomitant]
  8. METOPROLOL TARTRATE [Concomitant]
  9. LIPONACID [Concomitant]
  10. TORSEMIDE [Concomitant]
  11. GLIMEPIRIDE [Concomitant]
  12. ATORVASTATIN [Concomitant]
  13. NITRATE [Concomitant]

REACTIONS (1)
  - RENAL FAILURE ACUTE [None]
